FAERS Safety Report 13988521 (Version 4)
Quarter: 2017Q4

REPORT INFORMATION
  Report Type: Spontaneous
  Country: US (occurrence: US)
  Receive Date: 20170919
  Receipt Date: 20171129
  Transmission Date: 20180321
  Serious: Yes (Death)
  Sender: FDA-Public Use
  Company Number: US-TAIHO ONCOLOGY INC-EU-2017-01234

PATIENT
  Age: 75 Year
  Sex: Male
  Weight: 78.45 kg

DRUGS (1)
  1. LONSURF [Suspect]
     Active Substance: TIPIRACIL HYDROCHLORIDE\TRIFLURIDINE
     Indication: COLON CANCER
     Dosage: CYCLE 2
     Route: 048
     Dates: start: 20170821

REACTIONS (7)
  - Weight decreased [Unknown]
  - Vomiting [Recovered/Resolved]
  - Fatigue [Unknown]
  - Expired product administered [Unknown]
  - Death [Fatal]
  - Decreased appetite [Unknown]
  - Muscle spasms [Recovered/Resolved]

NARRATIVE: CASE EVENT DATE: 2017
